FAERS Safety Report 4398249-X (Version None)
Quarter: 2004Q3

REPORT INFORMATION
  Report Type: 
  Country: None (occurrence: None)
  Receive Date: 20040714
  Receipt Date: 20040714
  Transmission Date: 20050211
  Serious: Yes (Life-Threatening, Hospitalization, Disabling)
  Sender: FDA-Public Use
  Company Number: None

PATIENT
  Age: 72 Year
  Sex: Female

DRUGS (1)
  1. NEURONTIN [Suspect]
     Indication: FIBROMYALGIA
     Dosage: 300 MG ORALLY
     Route: 048
     Dates: start: 20040309, end: 20040322

REACTIONS (14)
  - ABNORMAL DREAMS [None]
  - ANGER [None]
  - ARRHYTHMIA [None]
  - COORDINATION ABNORMAL [None]
  - HEADACHE [None]
  - INFLAMMATION [None]
  - MEMORY IMPAIRMENT [None]
  - MOOD ALTERED [None]
  - MUSCLE RIGIDITY [None]
  - NIGHTMARE [None]
  - OEDEMA PERIPHERAL [None]
  - SKIN ULCER [None]
  - SPEECH DISORDER [None]
  - VISION BLURRED [None]
